FAERS Safety Report 5234783-8 (Version None)
Quarter: 2007Q1

REPORT INFORMATION
  Report Type: 
  Country: None (occurrence: None)
  Receive Date: 20070209
  Receipt Date: 20061228
  Transmission Date: 20070707
  Serious: Yes (Hospitalization)
  Sender: FDA-Public Use
  Company Number: US-BOEHRINGER INGELHEIM PHARMACEUTICALS, INC.-2006-BP-12481BP

PATIENT
  Age: 85 Year
  Sex: Female

DRUGS (5)
  1. CATAPRES-TTS-1 [Suspect]
     Indication: HYPERTENSION
     Route: 061
     Dates: start: 20040101
  2. ISOSORBIDE [Concomitant]
  3. ASPIRIN [Concomitant]
  4. LOTREL [Concomitant]
     Indication: HYPERTENSION
  5. SYNTHROID [Concomitant]
     Indication: HYPOTHYROIDISM

REACTIONS (6)
  - APPLICATION SITE RASH [None]
  - DRUG INEFFECTIVE [None]
  - PNEUMONIA [None]
  - RASH PRURITIC [None]
  - RENAL IMPAIRMENT [None]
  - URETERIC OBSTRUCTION [None]
